FAERS Safety Report 8079736-X (Version None)
Quarter: 2012Q1

REPORT INFORMATION
  Report Type: 
  Country: None (occurrence: None)
  Receive Date: 20120128
  Receipt Date: 20110720
  Transmission Date: 20120608
  Serious: No
  Sender: FDA-Public Use
  Company Number: US-ABBOTT-11P-163-0840424-00

PATIENT
  Sex: Female
  Weight: 95.34 kg

DRUGS (4)
  1. HUMIRA [Suspect]
     Indication: RHEUMATOID ARTHRITIS
  2. HUMIRA [Suspect]
     Indication: RHEUMATOID ARTHRITIS
  3. HUMIRA [Suspect]
     Indication: ARTHRITIS
     Dates: start: 20110101
  4. HUMIRA [Suspect]
     Indication: ARTHRITIS
     Dates: start: 20110101

REACTIONS (2)
  - ARTHRALGIA [None]
  - DRUG EFFECT DELAYED [None]
